FAERS Safety Report 21237572 (Version 1)
Quarter: 2022Q3

REPORT INFORMATION
  Report Type: Spontaneous
  Country: US (occurrence: US)
  Receive Date: 20220822
  Receipt Date: 20220822
  Transmission Date: 20221027
  Serious: No
  Sender: FDA-Public Use
  Company Number: US-Ipsen Biopharmaceuticals, Inc.-2022-23569

PATIENT
  Sex: Female
  Weight: 63.5 kg

DRUGS (1)
  1. DYSPORT [Suspect]
     Active Substance: ABOBOTULINUMTOXINA
     Indication: Skin wrinkling
     Dosage: 10 UNITS TO 5 INJECTION POINTS= 50 UNITS (GLABELLAR LINES)
     Route: 065

REACTIONS (1)
  - Drug ineffective [Unknown]
